FAERS Safety Report 4449285-6 (Version None)
Quarter: 2004Q3

REPORT INFORMATION
  Report Type: 
  Country: None (occurrence: None)
  Receive Date: 20040913
  Receipt Date: 20040831
  Transmission Date: 20050211
  Serious: Yes (Hospitalization)
  Sender: FDA-Public Use
  Company Number: 2004231318US

PATIENT
  Age: 58 Year
  Sex: Female
  Weight: 72.6 kg

DRUGS (2)
  1. DETROL LA [Suspect]
     Indication: MICTURITION URGENCY
     Dosage: 4 MG, QD, ORAL
     Route: 048
     Dates: start: 20040716
  2. FOXAMAX [Concomitant]

REACTIONS (8)
  - BLOOD PRESSURE FLUCTUATION [None]
  - DEHYDRATION [None]
  - DIZZINESS [None]
  - FALL [None]
  - FOOT FRACTURE [None]
  - HEADACHE [None]
  - MALAISE [None]
  - NAUSEA [None]
